FAERS Safety Report 4895129-8 (Version None)
Quarter: 2006Q1

REPORT INFORMATION
  Report Type: 
  Country: None (occurrence: None)
  Receive Date: 20060125
  Receipt Date: 20060111
  Transmission Date: 20060701
  Serious: Yes (Other)
  Sender: FDA-Public Use
  Company Number: ESWYE294312JAN06

PATIENT
  Age: 65 Year
  Sex: Male

DRUGS (5)
  1. RAPAMUNE [Suspect]
     Indication: PROPHYLAXIS AGAINST TRANSPLANT REJECTION
     Dosage: SEE IMAGE
     Route: 048
  2. RAPAMUNE [Suspect]
     Indication: PROPHYLAXIS AGAINST TRANSPLANT REJECTION
     Dosage: SEE IMAGE
     Route: 048
  3. INSULIN [Concomitant]
  4. COZAAR [Concomitant]
  5. CALCIUM (CALCIUM) [Concomitant]

REACTIONS (2)
  - MENISCUS LESION [None]
  - OSTEOARTHRITIS [None]
